FAERS Safety Report 9216728 (Version 2)
Quarter: 2013Q2

REPORT INFORMATION
  Report Type: Spontaneous
  Country: US (occurrence: US)
  Receive Date: 20130408
  Receipt Date: 20130429
  Transmission Date: 20140414
  Serious: No
  Sender: FDA-Public Use
  Company Number: US-PFIZER INC-2013108745

PATIENT
  Sex: Female

DRUGS (6)
  1. METHOTREXATE SODIUM [Suspect]
     Dosage: UNK
  2. PREDNISONE [Suspect]
     Dosage: UNK
  3. PLAQUENIL [Suspect]
     Dosage: UNK
  4. CLINORIL [Suspect]
     Dosage: UNK
  5. PERCOCET [Suspect]
     Dosage: UNK
  6. FOSAMAX [Suspect]
     Dosage: UNK

REACTIONS (1)
  - No adverse event [Unknown]
